FAERS Safety Report 12283758 (Version 1)
Quarter: 2016Q2

REPORT INFORMATION
  Report Type: Spontaneous
  Country: US (occurrence: US)
  Receive Date: 20160419
  Receipt Date: 20160419
  Transmission Date: 20160815
  Serious: No
  Sender: FDA-Public Use
  Company Number: US-BANPHARM-20154152

PATIENT
  Age: 63 Year
  Sex: Female
  Weight: 113.4 kg

DRUGS (1)
  1. ALEVE [Suspect]
     Active Substance: NAPROXEN SODIUM
     Dosage: 1 DF, Q8H,
     Route: 048
     Dates: start: 201508, end: 20150812

REACTIONS (4)
  - Dizziness [Recovered/Resolved]
  - Dizziness postural [Not Recovered/Not Resolved]
  - Asthenia [Not Recovered/Not Resolved]
  - Malaise [Not Recovered/Not Resolved]

NARRATIVE: CASE EVENT DATE: 201508
